FAERS Safety Report 24147785 (Version 1)
Quarter: 2024Q3

REPORT INFORMATION
  Report Type: Spontaneous
  Country: US (occurrence: None)
  Receive Date: 20240727
  Receipt Date: 20240727
  Transmission Date: 20241016
  Serious: Yes (Hospitalization)
  Sender: Public
  Company Number: None

PATIENT
  Age: 24 Year
  Sex: Male
  Weight: 81.9 kg

DRUGS (1)
  1. HERBALS\MUSHROOMS UNSPECIFIED [Suspect]
     Active Substance: HERBALS\MUSHROOMS UNSPECIFIED
     Indication: Substance use
     Route: 048
     Dates: start: 20240602, end: 20240602

REACTIONS (13)
  - Loss of consciousness [None]
  - Toxicity to various agents [None]
  - Seizure [None]
  - Respiratory arrest [None]
  - Confusional state [None]
  - Headache [None]
  - Somnolence [None]
  - Muscle spasms [None]
  - Agitation [None]
  - Anxiety [None]
  - Chest pain [None]
  - Dyspnoea [None]
  - Heart rate abnormal [None]

NARRATIVE: CASE EVENT DATE: 20240602
